FAERS Safety Report 15437042 (Version 4)
Quarter: 2019Q3

REPORT INFORMATION
  Report Type: Report from Study
  Country: US (occurrence: US)
  Receive Date: 20180927
  Receipt Date: 20190701
  Transmission Date: 20191004
  Serious: No
  Sender: FDA-Public Use
  Company Number: US-CLOVIS ONCOLOGY-CLO-2018-000939

PATIENT
  Sex: Female

DRUGS (1)
  1. RUBRACA [Suspect]
     Active Substance: RUCAPARIB CAMSYLATE
     Indication: OVARIAN CANCER
     Dosage: 600 MG, BID
     Route: 048
     Dates: start: 20180627

REACTIONS (16)
  - Asthenia [Not Recovered/Not Resolved]
  - Dyspepsia [Not Recovered/Not Resolved]
  - Skin mass [Unknown]
  - Blood magnesium decreased [Unknown]
  - Constipation [Recovering/Resolving]
  - Anaemia [Not Recovered/Not Resolved]
  - Hepatic steatosis [Unknown]
  - Fatigue [Not Recovered/Not Resolved]
  - Decreased appetite [Recovering/Resolving]
  - Early satiety [Not Recovered/Not Resolved]
  - Musculoskeletal chest pain [Unknown]
  - Nausea [Recovering/Resolving]
  - Sunburn [Not Recovered/Not Resolved]
  - Weight decreased [Recovering/Resolving]
  - Nail bed disorder [Unknown]
  - Liver function test increased [Recovering/Resolving]

NARRATIVE: CASE EVENT DATE: 2018
